FAERS Safety Report 12841449 (Version 4)
Quarter: 2019Q1

REPORT INFORMATION
  Report Type: Spontaneous
  Country: US (occurrence: US)
  Receive Date: 20161012
  Receipt Date: 20190128
  Transmission Date: 20190417
  Serious: Yes (Hospitalization, Other)
  Sender: FDA-Public Use
  Company Number: US-DSJP-DSU-2016-123954

PATIENT

DRUGS (6)
  1. BENICAR HCT [Suspect]
     Active Substance: HYDROCHLOROTHIAZIDE\OLMESARTAN MEDOXOMIL
     Indication: HYPERTENSION
     Dosage: 40/25MG , QD
  2. DICYCLOMINE                        /00068601/ [Concomitant]
     Active Substance: DICYCLOMINE HYDROCHLORIDE
     Indication: PRODUCT USED FOR UNKNOWN INDICATION
     Dosage: UNK
  3. BENICAR HCT [Suspect]
     Active Substance: HYDROCHLOROTHIAZIDE\OLMESARTAN MEDOXOMIL
     Dosage: 40/25MG , QD
     Dates: start: 20130916, end: 20160203
  4. METFORMIN [Concomitant]
     Active Substance: METFORMIN HYDROCHLORIDE
     Indication: PRODUCT USED FOR UNKNOWN INDICATION
     Dosage: UNK
  5. BENICAR [Suspect]
     Active Substance: OLMESARTAN MEDOXOMIL
     Indication: HYPERTENSION
     Dosage: 40 MG, QD
     Route: 048
     Dates: start: 2013, end: 20160203
  6. BENICAR HCT [Suspect]
     Active Substance: HYDROCHLOROTHIAZIDE\OLMESARTAN MEDOXOMIL
     Dosage: 20/12.5 MG, QD
     Route: 048
     Dates: end: 20130916

REACTIONS (14)
  - Biliary dyskinesia [Recovered/Resolved]
  - Abdominal hernia [Unknown]
  - Oesophagitis [Unknown]
  - Gastrooesophageal reflux disease [Unknown]
  - Gallbladder operation [Unknown]
  - Pancreatitis [Recovered/Resolved]
  - Anaemia [Unknown]
  - Gastritis erosive [Recovered/Resolved]
  - Haematemesis [Recovered/Resolved]
  - Sprue-like enteropathy [Recovering/Resolving]
  - Diabetic gastroparesis [Not Recovered/Not Resolved]
  - Syncope [Not Recovered/Not Resolved]
  - Diverticulum [Unknown]
  - Umbilical hernia [Unknown]

NARRATIVE: CASE EVENT DATE: 2013
